FAERS Safety Report 5503657-7 (Version None)
Quarter: 2007Q4

REPORT INFORMATION
  Report Type: 
  Country: None (occurrence: None)
  Receive Date: 20071101
  Receipt Date: 20071024
  Transmission Date: 20080405
  Serious: Yes (Hospitalization, Other)
  Sender: FDA-Public Use
  Company Number: PHHO2006PL20048

PATIENT
  Age: 37 Year
  Sex: Female
  Weight: 56 kg

DRUGS (7)
  1. GLEEVEC [Suspect]
     Indication: CHRONIC MYELOID LEUKAEMIA
     Dosage: 800 MG, QD
     Route: 048
     Dates: start: 20061119, end: 20061126
  2. GLEEVEC [Suspect]
     Dosage: 400 MG, QD
     Route: 048
     Dates: start: 20061127, end: 20061127
  3. GLEEVEC [Suspect]
     Dosage: 600 MG, QD
     Route: 048
     Dates: start: 20070118, end: 20070403
  4. GLEEVEC [Suspect]
     Dosage: 400 MG, BID
     Route: 048
     Dates: start: 20070910, end: 20071004
  5. PLENDIL [Concomitant]
     Indication: HYPERTENSION
  6. AMLOZEK [Concomitant]
  7. BETALOC [Concomitant]

REACTIONS (9)
  - ANAEMIA [None]
  - ASTHENIA [None]
  - FACE OEDEMA [None]
  - HYPOPHOSPHATAEMIA [None]
  - LEUKOPENIA [None]
  - METRORRHAGIA [None]
  - THROMBOCYTOPENIA [None]
  - UTERINE HAEMORRHAGE [None]
  - VAGINAL HAEMORRHAGE [None]
